FAERS Safety Report 9119652 (Version 3)
Quarter: 2013Q3

REPORT INFORMATION
  Report Type: Report from Study
  Country: SE (occurrence: SE)
  Receive Date: 20130207
  Receipt Date: 20130923
  Transmission Date: 20140515
  Serious: Yes (Other)
  Sender: FDA-Public Use
  Company Number: SE-PFIZER INC-2013012685

PATIENT
  Age: 61 Year
  Sex: Female
  Weight: 66 kg

DRUGS (7)
  1. TOFACITINIB CITRATE [Suspect]
     Indication: RHEUMATOID ARTHRITIS
     Dosage: 5 MG, 2X/DAY
     Route: 048
     Dates: start: 20110124, end: 20121123
  2. METHOTREXATE [Concomitant]
     Indication: RHEUMATOID ARTHRITIS
     Dosage: (DOSE 2 TABLETS) 20 MG, ONCE A WEEK
     Dates: start: 20121211
  3. PREDNISOLONE [Concomitant]
     Indication: RHEUMATOID ARTHRITIS
     Dosage: LOW DOSE AT 5 MG, 1X/DAY
  4. CALCICHEW [Concomitant]
     Dosage: UNK
     Route: 048
     Dates: start: 20121010
  5. FOLACIN [Concomitant]
     Indication: RHEUMATOID ARTHRITIS
     Dosage: UNK
     Route: 048
     Dates: start: 20101027
  6. OMEPRAZOL [Concomitant]
     Indication: GASTRITIS
     Dosage: UNK
     Route: 048
     Dates: start: 20100928
  7. CALCIUM PHOSPHATE [Concomitant]

REACTIONS (1)
  - Scleritis [Recovered/Resolved with Sequelae]
